FAERS Safety Report 16372198 (Version 2)
Quarter: 2019Q3

REPORT INFORMATION
  Report Type: Spontaneous
  Country: AR (occurrence: AR)
  Receive Date: 20190530
  Receipt Date: 20190725
  Transmission Date: 20191004
  Serious: Yes (Other)
  Sender: FDA-Public Use
  Company Number: AR-PFIZER INC-2019227688

PATIENT
  Age: 68 Year
  Sex: Male

DRUGS (2)
  1. SUTENT [Suspect]
     Active Substance: SUNITINIB MALATE
     Dosage: 28 DAYS OF TAKING AND 28 DAYS OF REST
     Dates: start: 201905
  2. SUTENT [Suspect]
     Active Substance: SUNITINIB MALATE
     Indication: RENAL CANCER
     Dosage: 50 MG, CYCLIC (SCHEMA 4/2 REST)
     Dates: start: 20190108

REACTIONS (6)
  - Malaise [Unknown]
  - Blister [Unknown]
  - Thyroid disorder [Unknown]
  - Genital haemorrhage [Unknown]
  - Laboratory test abnormal [Unknown]
  - White blood cell count decreased [Unknown]

NARRATIVE: CASE EVENT DATE: 201905
